FAERS Safety Report 21550318 (Version 2)
Quarter: 2022Q4

REPORT INFORMATION
  Report Type: Spontaneous
  Country: CN (occurrence: CN)
  Receive Date: 20221103
  Receipt Date: 20221111
  Transmission Date: 20230112
  Serious: Yes (Hospitalization, Other)
  Sender: FDA-Public Use
  Company Number: CN-009507513-2210CHN001687

PATIENT
  Age: 76 Year
  Sex: Male

DRUGS (1)
  1. PEMBROLIZUMAB [Suspect]
     Active Substance: PEMBROLIZUMAB
     Indication: Non-small cell lung cancer
     Dosage: 1.7 MILLIGRAM/KILOGRAM, EVERY 17 DAYS
     Dates: start: 201703, end: 201801

REACTIONS (4)
  - Type 1 diabetes mellitus [Unknown]
  - Hypothyroidism [Unknown]
  - Hypopituitarism [Unknown]
  - Off label use [Unknown]

NARRATIVE: CASE EVENT DATE: 20170101
